FAERS Safety Report 11624370 (Version 1)
Quarter: 2015Q4

REPORT INFORMATION
  Report Type: Spontaneous
  Country: US (occurrence: US)
  Receive Date: 20151013
  Receipt Date: 20151013
  Transmission Date: 20160304
  Serious: No
  Sender: FDA-Public Use
  Company Number: US-TEVA-588094USA

PATIENT
  Sex: Male

DRUGS (1)
  1. OMEGA-3 ACIDS [Suspect]
     Active Substance: OMEGA-3 FATTY ACIDS
     Route: 065

REACTIONS (7)
  - Heart rate increased [Unknown]
  - Blood mercury abnormal [Unknown]
  - Product substitution issue [Unknown]
  - Chest pain [Unknown]
  - Anxiety [Unknown]
  - Flushing [Unknown]
  - Panic attack [Unknown]
